FAERS Safety Report 7959801-5 (Version None)
Quarter: 2011Q4

REPORT INFORMATION
  Report Type: 
  Country: None (occurrence: None)
  Receive Date: 20111206
  Receipt Date: 20111128
  Transmission Date: 20120403
  Serious: Yes (Other)
  Sender: FDA-Public Use
  Company Number: US-JNJFOC-20111111783

PATIENT
  Sex: Female
  Weight: 63.5 kg

DRUGS (2)
  1. HYDROCODONE [Concomitant]
     Indication: RHEUMATOID ARTHRITIS
  2. REMICADE [Suspect]
     Indication: RHEUMATOID ARTHRITIS
     Route: 042
     Dates: start: 20110718, end: 20111025

REACTIONS (5)
  - WEIGHT INCREASED [None]
  - PYREXIA [None]
  - ABDOMINAL PAIN UPPER [None]
  - HEADACHE [None]
  - ARTHRALGIA [None]
